FAERS Safety Report 4976109-0 (Version None)
Quarter: 2006Q2

REPORT INFORMATION
  Report Type: 
  Country: None (occurrence: None)
  Receive Date: 20060413
  Receipt Date: 20060403
  Transmission Date: 20061013
  Serious: Yes (Other)
  Sender: FDA-Public Use
  Company Number: 2006RR-01919

PATIENT
  Age: 77 Year
  Sex: Male

DRUGS (2)
  1. CO-AMOXICLAVE(AMOXICILLIN TRIHYDRATE) [Suspect]
     Dosage: 2 G, TID, INTRAVENOUS
     Route: 042
  2. PRIMIDONE [Concomitant]

REACTIONS (2)
  - DRUG INTERACTION [None]
  - HEPATITIS ACUTE [None]
